FAERS Safety Report 6615102-9 (Version None)
Quarter: 2010Q1

REPORT INFORMATION
  Report Type: 
  Country: None (occurrence: None)
  Receive Date: 20100226
  Receipt Date: 20100216
  Transmission Date: 20100710
  Serious: Yes (Disabling)
  Sender: FDA-Public Use
  Company Number: OSCN-NO-0902S-0115

PATIENT
  Age: 66 Year
  Sex: Male

DRUGS (14)
  1. OMNISCAN [Suspect]
     Indication: DRUG USE FOR UNKNOWN INDICATION
     Dosage: 40 ML, SINGLE DOSE, I.V.; 40 ML, SINGLE DOSE, I.V.
     Route: 042
     Dates: start: 20040513, end: 20040513
  2. OMNISCAN [Suspect]
     Indication: DRUG USE FOR UNKNOWN INDICATION
     Dosage: 40 ML, SINGLE DOSE, I.V.; 40 ML, SINGLE DOSE, I.V.
     Route: 042
     Dates: start: 20050411, end: 20050411
  3. ERYTHROPOIETIN (NEORECORMON) [Concomitant]
  4. SACCHARATED IRON OXIDE (VENOFER) [Concomitant]
  5. ALFACALCIDOL [Concomitant]
  6. ENLAPRIL    (RENITEC) [Concomitant]
  7. FUROSEMIODE  (DIURAL) [Concomitant]
  8. METOPROLOL SUCCINATE     (SWLO-ZOK) [Concomitant]
  9. ACETYLSALICYLIC ACID      (MAGNLY DAK) [Concomitant]
  10. NORVASC [Concomitant]
  11. INSULINE HUMAN   (INSULATARD) [Concomitant]
  12. ALLOPURINOL [Concomitant]
  13. CALCIUM ACETATE   (PHS-EX) [Concomitant]
  14. ZOCOR [Concomitant]

REACTIONS (10)
  - ABDOMINAL ABSCESS [None]
  - ABDOMINAL INFECTION [None]
  - DIALYSIS [None]
  - DISEASE COMPLICATION [None]
  - ENTEROCOCCAL INFECTION [None]
  - FUNGAL INFECTION [None]
  - HAEMODIALYSIS [None]
  - MEDICAL DEVICE COMPLICATION [None]
  - NEPHROGENIC SYSTEMIC FIBROSIS [None]
  - PERITONITIS [None]
